FAERS Safety Report 6070523-0 (Version None)
Quarter: 2009Q1

REPORT INFORMATION
  Report Type: 
  Country: None (occurrence: None)
  Receive Date: 20090209
  Receipt Date: 20090129
  Transmission Date: 20090719
  Serious: Yes (Hospitalization, Other)
  Sender: FDA-Public Use
  Company Number: DE-JNJFOC-20090100958

PATIENT
  Age: 46 Year
  Sex: Female
  Weight: 69 kg

DRUGS (7)
  1. REMICADE [Suspect]
     Dosage: RECEIVED A TOTAL OF 3 INFUSIONS
     Route: 042
  2. REMICADE [Suspect]
     Indication: JUVENILE ARTHRITIS
     Dosage: 2 INFUSIONS IN 2004
     Route: 042
  3. POTASSIUM/MAGNESIUM [Concomitant]
     Dosage: TIMES A DAILY
  4. PREDNISOLONE [Concomitant]
     Indication: JUVENILE ARTHRITIS
     Dosage: FOR YEARS
     Route: 048
  5. CALCIUM AND D3 [Concomitant]
     Indication: OSTEOPOROSIS PROPHYLAXIS
     Dosage: 2 TABLET DAILY
     Route: 048
  6. TILIDIN/NALOXON [Concomitant]
     Indication: PAIN
     Route: 048
  7. VOLTAREN [Concomitant]

REACTIONS (9)
  - BRONCHOSPASM [None]
  - CHEST PAIN [None]
  - CIRCULATORY COLLAPSE [None]
  - DYSPNOEA [None]
  - PALPITATIONS [None]
  - RASH [None]
  - TACHYCARDIA [None]
  - TYPE IV HYPERSENSITIVITY REACTION [None]
  - URTICARIA [None]
